FAERS Safety Report 7805454-6 (Version None)
Quarter: 2011Q4

REPORT INFORMATION
  Report Type: 
  Country: None (occurrence: None)
  Receive Date: 20111010
  Receipt Date: 20110928
  Transmission Date: 20120403
  Serious: Yes (Hospitalization)
  Sender: FDA-Public Use
  Company Number: PHEH2011US05557

PATIENT
  Sex: Male

DRUGS (2)
  1. BACLOFEN [Concomitant]
     Route: 037
  2. GILENYA [Suspect]
     Dosage: UNK UKN, UNK
     Route: 048

REACTIONS (3)
  - DRUG ADMINISTRATION ERROR [None]
  - OSTEOMYELITIS [None]
  - CELLULITIS [None]
